FAERS Safety Report 21842795 (Version 2)
Quarter: 2023Q4

REPORT INFORMATION
  Report Type: Report from Study
  Country: ES (occurrence: None)
  Receive Date: 20230110
  Receipt Date: 20231025
  Transmission Date: 20240109
  Serious: Yes (Death)
  Sender: FDA-Public Use
  Company Number: ES-ROCHE-3257338

PATIENT
  Age: 79 Year
  Sex: Male
  Weight: 83.5 kg

DRUGS (3)
  1. ATEZOLIZUMAB [Suspect]
     Active Substance: ATEZOLIZUMAB
     Indication: Transitional cell carcinoma
     Dosage: ON 14/DEC/2021, HE HAD THE MOST RECENT DOSE OF ATEZOLIZUMAB PRIOR TO SAE.
     Route: 041
     Dates: start: 20210806
  2. CISPLATIN [Suspect]
     Active Substance: CISPLATIN
     Indication: Transitional cell carcinoma
     Dosage: ON 16/NOV/2021, HE HAD THE MOST RECENT DOSE OF CISPLATINE PRIOR TO SAE.
     Route: 042
     Dates: start: 20210806
  3. GEMCITABINE [Suspect]
     Active Substance: GEMCITABINE
     Indication: Transitional cell carcinoma
     Dosage: ON 16/NOV/2021, HE HAD THE MOST RECENT DOSE OF GEMCITABINE PRIOR TO SAE.
     Route: 042
     Dates: start: 20210806

REACTIONS (1)
  - Sepsis [Fatal]

NARRATIVE: CASE EVENT DATE: 20230102
